FAERS Safety Report 6826349-0 (Version None)
Quarter: 2010Q3

REPORT INFORMATION
  Report Type: 
  Country: None (occurrence: None)
  Receive Date: 20100709
  Receipt Date: 20100702
  Transmission Date: 20110219
  Serious: Yes (Hospitalization)
  Sender: FDA-Public Use
  Company Number: GB-CEPHALON-2010003624

PATIENT
  Sex: Female

DRUGS (2)
  1. PROVIGIL [Suspect]
     Route: 048
  2. PROVIGIL [Suspect]
     Route: 048

REACTIONS (4)
  - AGITATION [None]
  - DRUG DIVERSION [None]
  - EXTRAPYRAMIDAL DISORDER [None]
  - OVERDOSE [None]
